FAERS Safety Report 4496649-0 (Version None)
Quarter: 2004Q4

REPORT INFORMATION
  Report Type: 
  Country: None (occurrence: None)
  Receive Date: 20041109
  Receipt Date: 20040914
  Transmission Date: 20050328
  Serious: Yes (Death, Hospitalization)
  Sender: FDA-Public Use
  Company Number: CA-NOVOPROD-239318

PATIENT
  Age: 63 Year
  Sex: Male
  Weight: 63 kg

DRUGS (11)
  1. NIASTASE [Suspect]
     Indication: AORTIC ANEURYSM RUPTURE
     Dosage: 1.2 MG, SINGLE
     Route: 042
     Dates: start: 20040726, end: 20040727
  2. NIASTASE [Suspect]
     Dosage: 4.8 MG (7 HRS AFTER 1ST DOSE)
     Dates: start: 20040727, end: 20040727
  3. FENTANYL [Concomitant]
     Route: 042
  4. PROPOFOL [Concomitant]
     Route: 042
  5. NITRO [Concomitant]
     Indication: HYPOTENSION
     Route: 042
  6. PENTASPAN [Concomitant]
     Indication: FLUID REPLACEMENT
     Route: 042
  7. ATIVAN [Concomitant]
     Indication: AGITATION
     Route: 042
  8. PANTOLOC ^BYK GULDEN^ [Concomitant]
     Route: 042
  9. PHENYLEPHRINE [Concomitant]
     Route: 042
  10. LEVOPHED [Concomitant]
     Route: 042
  11. CALCIUM CHLORATE [Concomitant]
     Route: 042

REACTIONS (11)
  - ACUTE MYOCARDIAL INFARCTION [None]
  - BRADYCARDIA [None]
  - CARDIAC ARREST [None]
  - ELECTROMECHANICAL DISSOCIATION [None]
  - HYPOVENTILATION [None]
  - POST PROCEDURAL COMPLICATION [None]
  - POST PROCEDURAL HAEMORRHAGE [None]
  - POSTOPERATIVE INFECTION [None]
  - PROCEDURAL HYPOTENSION [None]
  - SEPSIS [None]
  - SURGICAL PROCEDURE REPEATED [None]
